FAERS Safety Report 7624790-X (Version None)
Quarter: 2011Q3

REPORT INFORMATION
  Report Type: 
  Country: None (occurrence: None)
  Receive Date: 20110720
  Receipt Date: 20081008
  Transmission Date: 20111222
  Serious: Yes (Hospitalization, Disabling, Other)
  Sender: FDA-Public Use
  Company Number: US-BAYER-US-2007-007044

PATIENT
  Age: 56 Year
  Sex: Female
  Weight: 79 kg

DRUGS (10)
  1. COZAAR [Concomitant]
  2. LOPRESSOR [Concomitant]
  3. MAGNEVIST [Suspect]
     Indication: ANGIOGRAM
     Dosage: 40 ML, 1 DOSE
     Route: 042
     Dates: start: 20070131, end: 20070131
  4. RENAGEL [Concomitant]
  5. NEPHROCAPS [Concomitant]
  6. COREG [Concomitant]
  7. FERROUS SULFATE TAB [Concomitant]
  8. FOSRENOL [Concomitant]
  9. NORVASC [Concomitant]
  10. SULAR [Concomitant]

REACTIONS (16)
  - GENERAL PHYSICAL HEALTH DETERIORATION [None]
  - PAIN IN EXTREMITY [None]
  - INJURY [None]
  - JOINT CONTRACTURE [None]
  - SKIN DISCOLOURATION [None]
  - SKIN INDURATION [None]
  - FIBROSIS [None]
  - ANXIETY [None]
  - EMOTIONAL DISTRESS [None]
  - PAIN [None]
  - PRURITUS [None]
  - SWELLING [None]
  - MOBILITY DECREASED [None]
  - NEPHROGENIC SYSTEMIC FIBROSIS [None]
  - SCAR [None]
  - ANHEDONIA [None]
